FAERS Safety Report 25790801 (Version 1)
Quarter: 2025Q3

REPORT INFORMATION
  Report Type: Spontaneous
  Country: US (occurrence: None)
  Receive Date: 20250910
  Receipt Date: 20250910
  Transmission Date: 20251021
  Serious: Yes (Death, Hospitalization, Other)
  Sender: FDA-CTU
  Company Number: None

PATIENT
  Age: 83 Year
  Sex: Female

DRUGS (1)
  1. LENALIDOMIDE [Suspect]
     Active Substance: LENALIDOMIDE
     Dosage: FREQUENCY : DAILY;?
     Route: 048
     Dates: start: 20210709, end: 20250529

REACTIONS (3)
  - Cerebrovascular accident [None]
  - Therapy interrupted [None]
  - Cardiac failure congestive [None]

NARRATIVE: CASE EVENT DATE: 20250827
